FAERS Safety Report 24325804 (Version 3)
Quarter: 2025Q4

REPORT INFORMATION
  Report Type: Spontaneous
  Country: EU (occurrence: None)
  Receive Date: 20240917
  Receipt Date: 20251226
  Transmission Date: 20260118
  Serious: No
  Sender: UCB
  Company Number: EU-UCBSA-2024045597

PATIENT
  Weight: 88 kg

DRUGS (1)
  1. NEUPRO [Suspect]
     Active Substance: ROTIGOTINE
     Indication: Restless legs syndrome
     Dosage: 2 MILLIGRAM, ONCE DAILY (QD)

REACTIONS (3)
  - Drug ineffective [Unknown]
  - Therapeutic product effect incomplete [Unknown]
  - Product quality issue [Unknown]
